FAERS Safety Report 10597329 (Version 1)
Quarter: 2014Q4

REPORT INFORMATION
  Report Type: Spontaneous
  Country: US (occurrence: None)
  Receive Date: 20141120
  Receipt Date: 20141120
  Transmission Date: 20150529
  Serious: Yes (Hospitalization)
  Sender: FDA-Public Use
  Company Number: None

PATIENT
  Age: 69 Year
  Sex: Female
  Weight: 66.36 kg

DRUGS (2)
  1. CARBOPLATIN. [Suspect]
     Active Substance: CARBOPLATIN
     Dates: end: 20130701
  2. TAXOL [Suspect]
     Active Substance: PACLITAXEL
     Dates: end: 20130701

REACTIONS (7)
  - Hypoxia [None]
  - Pneumonia [None]
  - Refusal of treatment by patient [None]
  - Blood albumin decreased [None]
  - Ascites [None]
  - Confusional state [None]
  - Lung infiltration [None]

NARRATIVE: CASE EVENT DATE: 20130705
